FAERS Safety Report 16000228 (Version 2)
Quarter: 2019Q2

REPORT INFORMATION
  Report Type: Spontaneous
  Country: US (occurrence: US)
  Receive Date: 20190225
  Receipt Date: 20190410
  Transmission Date: 20190711
  Serious: Yes (Other)
  Sender: FDA-Public Use
  Company Number: US-PFIZER INC-2019078567

PATIENT
  Age: 73 Year
  Sex: Female
  Weight: 55.34 kg

DRUGS (2)
  1. ADVIL PM [Suspect]
     Active Substance: DIPHENHYDRAMINE CITRATE\IBUPROFEN
     Indication: BACK PAIN
     Dosage: 2 DF, SINGLE (ONLY TOOK TWO LIQUIGELS)
     Dates: start: 20190217, end: 20190217
  2. ADVIL PM [Suspect]
     Active Substance: DIPHENHYDRAMINE CITRATE\IBUPROFEN
     Indication: INSOMNIA

REACTIONS (5)
  - Product use complaint [Unknown]
  - Drug ineffective [Recovered/Resolved]
  - Product size issue [Unknown]
  - Foreign body in respiratory tract [Unknown]
  - Choking [Recovered/Resolved]

NARRATIVE: CASE EVENT DATE: 20190217
